FAERS Safety Report 6362711-0 (Version None)
Quarter: 2009Q3

REPORT INFORMATION
  Report Type: 
  Country: None (occurrence: None)
  Receive Date: 20090919
  Receipt Date: 20090612
  Transmission Date: 20100115
  Serious: Yes (Other)
  Sender: FDA-Public Use
  Company Number: US-ABBOTT-09P-163-0578879-00

PATIENT
  Sex: Male
  Weight: 86.26 kg

DRUGS (3)
  1. HUMIRA [Suspect]
     Indication: RHEUMATOID ARTHRITIS
     Route: 058
     Dates: start: 20090101, end: 20090401
  2. HUMIRA [Suspect]
     Route: 058
     Dates: start: 20090608
  3. UNKNOWN HIGH BLOOD PRESSURE MED [Concomitant]
     Indication: HYPERTENSION

REACTIONS (1)
  - PROSTATE CANCER [None]
